FAERS Safety Report 5538220-5 (Version None)
Quarter: 2007Q4

REPORT INFORMATION
  Report Type: 
  Country: None (occurrence: None)
  Receive Date: 20071123
  Receipt Date: 20061019
  Transmission Date: 20080405
  Serious: Yes (Other)
  Sender: FDA-Public Use
  Company Number: US-JNJFOC-20061004835

PATIENT
  Age: 80 Year
  Sex: Female

DRUGS (2)
  1. LEVAQUIN [Suspect]
     Indication: URINARY TRACT INFECTION
     Dosage: 500 MG, IN 1 DAY, ORAL
     Route: 048
     Dates: start: 20061010, end: 20061018
  2. STERIODS (ANABOLIC STEROIDS) UNSPECIFIED [Concomitant]

REACTIONS (1)
  - TENDON RUPTURE [None]
